FAERS Safety Report 9726170 (Version 1)
Quarter: 2013Q4

REPORT INFORMATION
  Report Type: Spontaneous
  Country: US (occurrence: None)
  Receive Date: 20131202
  Receipt Date: 20131202
  Transmission Date: 20140711
  Serious: Yes (Hospitalization)
  Sender: FDA-Public Use
  Company Number: None

PATIENT
  Age: 80 Year
  Sex: Male
  Weight: 90.8 kg

DRUGS (1)
  1. ERLOTINIB [Suspect]
     Indication: LUNG NEOPLASM MALIGNANT
     Dates: start: 20131120, end: 20131126

REACTIONS (6)
  - Fatigue [None]
  - Diarrhoea [None]
  - Dehydration [None]
  - Loss of consciousness [None]
  - Syncope [None]
  - Unresponsive to stimuli [None]
